FAERS Safety Report 15934019 (Version 1)
Quarter: 2019Q1

REPORT INFORMATION
  Report Type: Spontaneous
  Country: US (occurrence: US)
  Receive Date: 20190207
  Receipt Date: 20190207
  Transmission Date: 20190417
  Serious: Yes (Death, Hospitalization)
  Sender: FDA-Public Use
  Company Number: PHHY2019US026883

PATIENT
  Age: 63 Year
  Sex: Female

DRUGS (1)
  1. DOXYCYCLINE. [Suspect]
     Active Substance: DOXYCYCLINE
     Indication: CELLULITIS
     Route: 065

REACTIONS (8)
  - Ventricular tachycardia [Fatal]
  - Product use in unapproved indication [Unknown]
  - Cardiac arrest [Fatal]
  - Fatigue [Fatal]
  - Toxic epidermal necrolysis [Fatal]
  - Rash [Fatal]
  - Hypotension [Unknown]
  - Pain [Fatal]
